FAERS Safety Report 18186887 (Version 2)
Quarter: 2020Q3

REPORT INFORMATION
  Report Type: Spontaneous
  Country: US (occurrence: US)
  Receive Date: 20200824
  Receipt Date: 20200903
  Transmission Date: 20201103
  Serious: No
  Sender: FDA-Public Use
  Company Number: US-PFIZER INC-2020326142

PATIENT
  Age: 43 Year
  Sex: Female

DRUGS (8)
  1. PROBIOTIC BLEND [Concomitant]
     Dosage: 2B CELL?50 CAPSULE
  2. CANASA [Concomitant]
     Active Substance: MESALAMINE
     Dosage: 1000 MG SUPP.RECT,
  3. LIALDA [Concomitant]
     Active Substance: MESALAMINE
     Dosage: 1.2 G TABLET DR
  4. VITAMIN D [COLECALCIFEROL] [Concomitant]
     Active Substance: CHOLECALCIFEROL
     Dosage: UNK [VITAMIN D?400 10 MCG TABLET]
  5. MULTIVITAMINS [VITAMINS NOS] [Concomitant]
     Active Substance: VITAMINS
     Dosage: UNK
  6. XELJANZ [Suspect]
     Active Substance: TOFACITINIB CITRATE
     Indication: COLITIS ULCERATIVE
     Dosage: UNK
  7. XELJANZ [Suspect]
     Active Substance: TOFACITINIB CITRATE
     Indication: RECTAL HAEMORRHAGE
  8. XELJANZ [Suspect]
     Active Substance: TOFACITINIB CITRATE
     Indication: COLITIS
     Dosage: 5 MG, 2X/DAY
     Route: 048
     Dates: start: 20200618

REACTIONS (1)
  - Blood cholesterol increased [Unknown]
